FAERS Safety Report 8363814-1 (Version None)
Quarter: 2012Q2

REPORT INFORMATION
  Report Type: 
  Country: None (occurrence: None)
  Receive Date: 20120516
  Receipt Date: 20120510
  Transmission Date: 20120825
  Serious: Yes (Other)
  Sender: FDA-Public Use
  Company Number: US-PFIZER INC-2012045407

PATIENT
  Sex: Male

DRUGS (2)
  1. CHANTIX [Suspect]
     Indication: SMOKING CESSATION THERAPY
     Dosage: UNK
     Dates: start: 20090401, end: 20090901
  2. PREVACID [Concomitant]
     Indication: GASTROOESOPHAGEAL REFLUX DISEASE
     Dosage: UNK
     Dates: start: 20070101

REACTIONS (9)
  - ANXIETY [None]
  - DEPRESSION [None]
  - INSOMNIA [None]
  - ABNORMAL DREAMS [None]
  - IRRITABILITY [None]
  - ANGER [None]
  - HOMICIDAL IDEATION [None]
  - PANIC ATTACK [None]
  - AMNESIA [None]
